FAERS Safety Report 5135312-X (Version None)
Quarter: 2006Q4

REPORT INFORMATION
  Report Type: 
  Country: None (occurrence: None)
  Receive Date: 20061026
  Receipt Date: 20061016
  Transmission Date: 20070319
  Serious: Yes (Hospitalization)
  Sender: FDA-Public Use
  Company Number: GB-AVENTIS-200620836GDDC

PATIENT
  Age: 67 Year
  Sex: Male
  Weight: 85 kg

DRUGS (4)
  1. DOCETAXEL [Suspect]
     Indication: PROSTATE CANCER
     Dosage: DOSE: UNK
     Route: 042
     Dates: start: 20060919, end: 20060919
  2. PREDNISOLONE [Suspect]
     Indication: PROSTATE CANCER
     Dosage: DOSE: UNK
     Route: 048
     Dates: start: 20060627, end: 20060919
  3. ZOLEDRONIC ACID [Suspect]
     Indication: PROSTATE CANCER
     Dosage: DOSE: UNK
     Dates: start: 20060919, end: 20060919
  4. STRONTIUM CHLORIDE SR-89 [Suspect]
     Indication: PROSTATE CANCER

REACTIONS (4)
  - DIARRHOEA [None]
  - FEBRILE NEUTROPENIA [None]
  - URINARY RETENTION [None]
  - VOMITING [None]
